FAERS Safety Report 11184911 (Version 1)
Quarter: 2015Q2

REPORT INFORMATION
  Report Type: Spontaneous
  Country: US (occurrence: None)
  Receive Date: 20150528
  Receipt Date: 20150528
  Transmission Date: 20150821
  Serious: Yes (Other)
  Sender: FDA-Public Use
  Company Number: 2014AP002723

PATIENT
  Sex: Female

DRUGS (1)
  1. TRAZODONE HYDROCHLORIDE (TRAZODONE) TABLET [Suspect]
     Active Substance: TRAZODONE HYDROCHLORIDE
     Dosage: UNK?DURATION 7 DAYS

REACTIONS (2)
  - Abdominal distension [None]
  - Urinary retention [None]
